FAERS Safety Report 6040148-1 (Version None)
Quarter: 2009Q1

REPORT INFORMATION
  Report Type: 
  Country: None (occurrence: None)
  Receive Date: 20090116
  Receipt Date: 20071224
  Transmission Date: 20090719
  Serious: No
  Sender: FDA-Public Use
  Company Number: US-BRISTOL-MYERS SQUIBB COMPANY-14024566

PATIENT
  Age: 57 Year
  Sex: Female
  Weight: 131 kg

DRUGS (1)
  1. ABILIFY [Suspect]
     Route: 048
     Dates: start: 20040501

REACTIONS (1)
  - MUSCULOSKELETAL STIFFNESS [None]
